FAERS Safety Report 4350679-8 (Version None)
Quarter: 2004Q2

REPORT INFORMATION
  Report Type: 
  Country: None (occurrence: None)
  Receive Date: 20040428
  Receipt Date: 20040416
  Transmission Date: 20050107
  Serious: Yes (Hospitalization)
  Sender: FDA-Public Use
  Company Number: HQWYE494116APR04

PATIENT
  Age: 53 Year
  Sex: Female

DRUGS (3)
  1. AMIODARONE HCL [Suspect]
     Indication: VENTRICULAR TACHYCARDIA
     Dosage: 200 MG 1 X PER 1 DAY
     Route: 048
     Dates: start: 20000329, end: 20040225
  2. LASIX [Concomitant]
  3. ALDACTONE [Concomitant]

REACTIONS (1)
  - INTERSTITIAL LUNG DISEASE [None]
